FAERS Safety Report 19031621 (Version 1)
Quarter: 2021Q1

REPORT INFORMATION
  Report Type: Spontaneous
  Country: US (occurrence: US)
  Receive Date: 20210319
  Receipt Date: 20210319
  Transmission Date: 20210420
  Serious: Yes (Hospitalization, Other)
  Sender: FDA-Public Use
  Company Number: US-BAYER-2021-108183

PATIENT
  Age: 45 Year
  Sex: Male

DRUGS (1)
  1. PARACETAMOL [Suspect]
     Active Substance: ACETAMINOPHEN
     Dosage: INGESTION OF AN UNDETERMINED AMOUNT
     Route: 048

REACTIONS (2)
  - Intentional overdose [Recovering/Resolving]
  - Analgesic drug level increased [Recovering/Resolving]
